FAERS Safety Report 24296282 (Version 1)
Quarter: 2024Q3

REPORT INFORMATION
  Report Type: Spontaneous
  Country: US (occurrence: US)
  Receive Date: 20240909
  Receipt Date: 20240909
  Transmission Date: 20241016
  Serious: No
  Sender: AUROBINDO
  Company Number: US-AUROBINDO-AUR-APL-2023-068523

PATIENT
  Age: 75 Year
  Sex: Female
  Weight: 48 kg

DRUGS (1)
  1. DORZOLAMIDE HYDROCHLORIDE\TIMOLOL MALEATE [Suspect]
     Active Substance: DORZOLAMIDE HYDROCHLORIDE\TIMOLOL MALEATE
     Indication: Intraocular pressure test
     Dosage: 1 GTT DROPS, TWO TIMES A DAY
     Route: 047
     Dates: start: 20231101, end: 20231104

REACTIONS (2)
  - Pruritus [Unknown]
  - Rash [Unknown]

NARRATIVE: CASE EVENT DATE: 20231104
